FAERS Safety Report 10988743 (Version 1)
Quarter: 2015Q2

REPORT INFORMATION
  Report Type: Spontaneous
  Country: GB (occurrence: GB)
  Receive Date: 20150405
  Receipt Date: 20150405
  Transmission Date: 20150821
  Serious: Yes (Disabling)
  Sender: FDA-Public Use
  Company Number: GB-DRREDDYS-GER/UKI/15/0047093

PATIENT
  Age: 75 Year
  Sex: Female
  Weight: 66 kg

DRUGS (12)
  1. LOSEC [Concomitant]
     Active Substance: OMEPRAZOLE
     Indication: PRODUCT USED FOR UNKNOWN INDICATION
     Dates: start: 20140915
  2. PARACETAMOL [Concomitant]
     Active Substance: ACETAMINOPHEN
     Indication: PRODUCT USED FOR UNKNOWN INDICATION
     Dates: start: 20140915
  3. SIMVASTATIN. [Concomitant]
     Active Substance: SIMVASTATIN
     Indication: PRODUCT USED FOR UNKNOWN INDICATION
     Dates: start: 20140915
  4. LIQUIFILM TEARS [Concomitant]
     Indication: PRODUCT USED FOR UNKNOWN INDICATION
     Dates: start: 20140915
  5. HYOSCINE BUTYLBROMIDE [Concomitant]
     Active Substance: BUTYLSCOPOLAMINE
     Indication: ABDOMINAL PAIN
     Dates: start: 20140905
  6. LAXIDO [Concomitant]
     Active Substance: POLYETHYLENE GLYCOL 3350\POTASSIUM CHLORIDE\SODIUM BICARBONATE\SODIUM CHLORIDE
     Indication: PRODUCT USED FOR UNKNOWN INDICATION
     Dates: start: 20140915
  7. TERBINAFINE [Suspect]
     Active Substance: TERBINAFINE
     Indication: PRODUCT USED FOR UNKNOWN INDICATION
     Dates: start: 20150309
  8. AMOROLFINE [Concomitant]
     Active Substance: AMOROLFINE
     Indication: PRODUCT USED FOR UNKNOWN INDICATION
     Dates: start: 20150325
  9. BISOPROLOL [Concomitant]
     Active Substance: BISOPROLOL
     Indication: PRODUCT USED FOR UNKNOWN INDICATION
     Dates: start: 20140915
  10. DERMOL [Concomitant]
     Active Substance: BENZALKONIUM CHLORIDE\CHLORHEXIDINE HYDROCHLORIDE\ISOPROPYL MYRISTATE\PARAFFIN
     Indication: PRODUCT USED FOR UNKNOWN INDICATION
     Dates: start: 20140915
  11. GLYCERYL TRINITRATE [Concomitant]
     Active Substance: NITROGLYCERIN
     Indication: PRODUCT USED FOR UNKNOWN INDICATION
     Dates: start: 20140915
  12. CODEINE PHOSPHATE [Concomitant]
     Active Substance: CODEINE PHOSPHATE
     Indication: PRODUCT USED FOR UNKNOWN INDICATION
     Dates: start: 20140915

REACTIONS (3)
  - Nausea [Recovered/Resolved]
  - Decreased appetite [Unknown]
  - Back pain [Recovering/Resolving]

NARRATIVE: CASE EVENT DATE: 20150325
